FAERS Safety Report 10374892 (Version 7)
Quarter: 2015Q2

REPORT INFORMATION
  Report Type: Report from Study
  Country: SE (occurrence: SE)
  Receive Date: 20140811
  Receipt Date: 20150410
  Transmission Date: 20150821
  Serious: Yes (Disabling)
  Sender: FDA-Public Use
  Company Number: SE-NOVOPROD-417989

PATIENT
  Age: 34 Year
  Sex: Female
  Weight: 85.6 kg

DRUGS (8)
  1. RIZATRIPTAN [Concomitant]
     Active Substance: RIZATRIPTAN
     Indication: MIGRAINE
     Dosage: 5 MG, INTERMITTENT TREATMENT
     Dates: start: 2004
  2. NAPROXEN. [Concomitant]
     Active Substance: NAPROXEN
     Indication: MIGRAINE
     Dosage: 500 MG, INTERMITTENT TREATMENT
     Dates: start: 2004
  3. METOKLOPRAMID [Concomitant]
     Indication: MIGRAINE
     Dosage: 20 MG, INTERMITTENT TREATMENT
     Dates: start: 2004
  4. INDERAL GRADUALE [Concomitant]
     Indication: MIGRAINE
     Dosage: 80 MG, QD
     Dates: start: 20140514
  5. PARACETAMOL [Concomitant]
     Active Substance: ACETAMINOPHEN
     Indication: NASOPHARYNGITIS
     Dosage: 2 G, QD
     Dates: start: 20140316, end: 20140318
  6. LIRAGLUTIDE FLEXPEN [Suspect]
     Active Substance: LIRAGLUTIDE
     Indication: TYPE 1 DIABETES MELLITUS
     Dosage: 1.8 MG, QD
     Route: 058
     Dates: start: 20140122, end: 20140724
  7. DICLOFENAC [Concomitant]
     Active Substance: DICLOFENAC
     Indication: DYSMENORRHOEA
     Dosage: 50 MG, QD
     Dates: start: 1999
  8. INSULIN LISPRO [Concomitant]
     Active Substance: INSULIN LISPRO
     Indication: TYPE 1 DIABETES MELLITUS
     Dosage: 55 U, QD
     Dates: start: 1997

REACTIONS (1)
  - Macular oedema [Recovering/Resolving]

NARRATIVE: CASE EVENT DATE: 20140725
